FAERS Safety Report 17923003 (Version 1)
Quarter: 2020Q2

REPORT INFORMATION
  Report Type: Spontaneous
  Country: US (occurrence: US)
  Receive Date: 20200622
  Receipt Date: 20200622
  Transmission Date: 20200714
  Serious: No
  Sender: FDA-Public Use
  Company Number: US-GLENMARK PHARMACEUTICALS-2020GMK047662

PATIENT

DRUGS (1)
  1. PROPAFENONE HYDROCHLORIDE EXTENDED RELEASE CAPSULES, USP [Suspect]
     Active Substance: PROPAFENONE HYDROCHLORIDE
     Indication: PRODUCT USED FOR UNKNOWN INDICATION
     Dosage: UNK (START DATE: 4 OR 5 YEARS BEFORE THIS REPORT)
     Route: 065
     Dates: end: 202003

REACTIONS (8)
  - Diarrhoea [Recovering/Resolving]
  - Anxiety [Recovering/Resolving]
  - Allergic reaction to excipient [Not Recovered/Not Resolved]
  - Product taste abnormal [Unknown]
  - Abdominal discomfort [Recovering/Resolving]
  - Product substitution issue [Unknown]
  - Drug hypersensitivity [Not Recovered/Not Resolved]
  - Skin burning sensation [Not Recovered/Not Resolved]

NARRATIVE: CASE EVENT DATE: 201901
